FAERS Safety Report 24662908 (Version 6)
Quarter: 2025Q1

REPORT INFORMATION
  Report Type: Spontaneous
  Country: US (occurrence: US)
  Receive Date: 20241126
  Receipt Date: 20250310
  Transmission Date: 20250409
  Serious: No
  Sender: AMGEN
  Company Number: US-AMGEN-USASP2024231290

PATIENT
  Age: 67 Year
  Sex: Male

DRUGS (5)
  1. OTEZLA [Suspect]
     Active Substance: APREMILAST
     Indication: Psoriasis
     Dosage: 30 MILLIGRAM, BID
     Route: 048
     Dates: start: 20241122
  2. CLARITIN [Concomitant]
     Active Substance: LORATADINE
  3. ELIQUIS [Concomitant]
     Active Substance: APIXABAN
  4. HUMIRA [Concomitant]
     Active Substance: ADALIMUMAB
  5. DUPIXENT [Concomitant]
     Active Substance: DUPILUMAB

REACTIONS (3)
  - Psoriasis [Unknown]
  - Viral infection [Not Recovered/Not Resolved]
  - Product dose omission issue [Unknown]

NARRATIVE: CASE EVENT DATE: 20241001
